FAERS Safety Report 9941470 (Version 1)
Quarter: 2014Q1

REPORT INFORMATION
  Report Type: Report from Study
  Country: US (occurrence: US)
  Receive Date: 20140303
  Receipt Date: 20140303
  Transmission Date: 20141002
  Serious: No
  Sender: FDA-Public Use
  Company Number: US-ABBVIE-13P-163-1043774-00

PATIENT
  Age: 52 Year
  Sex: Male

DRUGS (1)
  1. HUMIRA [Suspect]
     Indication: CROHN^S DISEASE
     Dosage: STARTED 2 WEEKS AFTER 2ND LOADING DOSE
     Route: 058
     Dates: start: 201206

REACTIONS (4)
  - Injection site swelling [Unknown]
  - Injection site pruritus [Unknown]
  - Cough [Unknown]
  - Rhinorrhoea [Unknown]
